FAERS Safety Report 8237858-4 (Version None)
Quarter: 2012Q1

REPORT INFORMATION
  Report Type: 
  Country: None (occurrence: None)
  Receive Date: 20120327
  Receipt Date: 20120320
  Transmission Date: 20120608
  Serious: Yes (Other)
  Sender: FDA-Public Use
  Company Number: PHHY2012BR005576

PATIENT
  Sex: Female
  Weight: 65 kg

DRUGS (9)
  1. DIOVAN [Suspect]
     Indication: HYPERTENSION
     Dosage: 80 MG, DAILY
     Route: 048
  2. ACETYLCYSTEINE [Suspect]
  3. AMIODARONE HYDROCHLORIDE [Suspect]
     Indication: ARRHYTHMIA
     Dosage: 1 DF (UNK), DAILY
  4. LIORESAL [Suspect]
  5. TICLOPIDINE HCL [Suspect]
  6. TRILEPTAL [Suspect]
     Dosage: 1 DF (UNK), QH12
  7. DOMPERIDONE [Suspect]
  8. DIOVAN [Suspect]
     Dosage: 80 MG, BID
     Dates: start: 20120112
  9. RANITIDINE [Suspect]

REACTIONS (2)
  - BLOOD PRESSURE INCREASED [None]
  - ANGIOPATHY [None]
